FAERS Safety Report 17769768 (Version 2)
Quarter: 2020Q2

REPORT INFORMATION
  Report Type: Spontaneous
  Country: US (occurrence: US)
  Receive Date: 20200512
  Receipt Date: 20200518
  Transmission Date: 20200714
  Serious: No
  Sender: FDA-Public Use
  Company Number: US-PFIZER INC-2020187211

PATIENT

DRUGS (3)
  1. ASPIRIN. [Suspect]
     Active Substance: ASPIRIN
     Dosage: 325 MG, DAILY
  2. ADVIL [Suspect]
     Active Substance: IBUPROFEN
     Dosage: UNK
  3. OMEGA 3 [Suspect]
     Active Substance: OMEGA-3 FATTY ACIDS
     Dosage: 2 DF

REACTIONS (4)
  - Pain [Unknown]
  - Abdominal discomfort [Unknown]
  - Pain in extremity [Unknown]
  - Haemoptysis [Unknown]
